FAERS Safety Report 7268538-X (Version None)
Quarter: 2011Q1

REPORT INFORMATION
  Report Type: 
  Country: None (occurrence: None)
  Receive Date: 20110201
  Receipt Date: 20110119
  Transmission Date: 20110831
  Serious: Yes (Death)
  Sender: FDA-Public Use
  Company Number: US-ACTELION-A-US2011-44156

PATIENT

DRUGS (2)
  1. CALCIUM CHANNEL BLOCKERS [Concomitant]
  2. VENTAVIS [Suspect]
     Dosage: UNK
     Route: 055
     Dates: start: 20100415, end: 20110102

REACTIONS (1)
  - DEATH [None]
